FAERS Safety Report 10552499 (Version 1)
Quarter: 2014Q4

REPORT INFORMATION
  Report Type: Spontaneous
  Country: US (occurrence: None)
  Receive Date: 20141023
  Receipt Date: 20141023
  Transmission Date: 20150529
  Serious: No
  Sender: FDA-Public Use
  Company Number: AP356-01128-SPO-US

PATIENT
  Age: 53 Year
  Sex: Female
  Weight: 109 kg

DRUGS (8)
  1. LEVOTHYROXINE [Concomitant]
     Active Substance: LEVOTHYROXINE
  2. VITAMIN D3(COLECALCIFEROL) [Concomitant]
  3. BELVIQ [Suspect]
     Active Substance: LORCASERIN HYDROCHLORIDE
     Indication: WEIGHT CONTROL
     Dosage: 2 IN 1 D
     Route: 048
  4. AMLODIPINE [Concomitant]
     Active Substance: AMLODIPINE BESYLATE
  5. VITAMIN B-12(CYANOCOBALAMIN) [Concomitant]
  6. HCTZ(HYDROCHLOROTHIAZIDE) [Concomitant]
  7. MULTIVITAMINS(MUTLIVITAMINS) [Concomitant]
  8. EYE VITAMINS (VITAMINS OTHER COMBINATIONS) [Concomitant]

REACTIONS (2)
  - Fatigue [None]
  - Dizziness [None]

NARRATIVE: CASE EVENT DATE: 20140724
